APPROVED DRUG PRODUCT: DOCETAXEL
Active Ingredient: DOCETAXEL
Strength: 80MG/8ML (10MG/ML)
Dosage Form/Route: INJECTABLE;INJECTION
Application: N022234 | Product #002 | TE Code: AP
Applicant: HOSPIRA INC
Approved: Mar 8, 2011 | RLD: Yes | RS: Yes | Type: RX